FAERS Safety Report 4689851-6 (Version None)
Quarter: 2005Q2

REPORT INFORMATION
  Report Type: 
  Country: None (occurrence: None)
  Receive Date: 20050614
  Receipt Date: 20050604
  Transmission Date: 20051028
  Serious: Yes (Other)
  Sender: FDA-Public Use
  Company Number: US-JNJFOC-20050602619

PATIENT
  Sex: Female

DRUGS (2)
  1. CONCENTRATED MOTRIN INFANTS' [Suspect]
  2. CONCENTRATED MOTRIN INFANTS' [Suspect]
     Dosage: ^1.875 ML^ 2-3 TIMES IN ONE DAY

REACTIONS (7)
  - HALLUCINATION [None]
  - OEDEMA PERIPHERAL [None]
  - RASH GENERALISED [None]
  - STEVENS-JOHNSON SYNDROME [None]
  - SWELLING FACE [None]
  - URTICARIA [None]
  - VIRAL INFECTION [None]
